FAERS Safety Report 23964516 (Version 1)
Quarter: 2024Q2

REPORT INFORMATION
  Report Type: Spontaneous
  Country: FI (occurrence: FI)
  Receive Date: 20240612
  Receipt Date: 20240612
  Transmission Date: 20240716
  Serious: Yes (Other)
  Sender: FDA-Public Use
  Company Number: None

PATIENT
  Age: 9 Year
  Sex: Male

DRUGS (3)
  1. CONCERTA [Suspect]
     Active Substance: METHYLPHENIDATE HYDROCHLORIDE
     Indication: Attention deficit hyperactivity disorder
     Dosage: STARTED WITH DOSE 18 MG 8/-23 / STARTED WITH DOSE 18 MG 8/-23
     Route: 048
     Dates: start: 202308
  2. CONCERTA [Suspect]
     Active Substance: METHYLPHENIDATE HYDROCHLORIDE
     Dosage: 1 CAPSULE IN THE MORNING.
     Route: 048
     Dates: start: 202312, end: 20240130
  3. RISPERIDONE [Concomitant]
     Active Substance: RISPERIDONE
     Indication: Aggression
     Dosage: 0.25 MG TABLET AT NIGHT, DOSE INCREASED 11/23 TO 0.5 MG AND DECREASED 12/23 BACK TO 0.25 MG DUE TO I
     Route: 048
     Dates: start: 202310, end: 20240115

REACTIONS (3)
  - Aggression [Recovered/Resolved]
  - Self-destructive behaviour [Recovered/Resolved]
  - Anger [Recovered/Resolved]

NARRATIVE: CASE EVENT DATE: 20230801
